FAERS Safety Report 8015620 (Version 4)
Quarter: 2014Q2

REPORT INFORMATION
  Report Type: Spontaneous
  Country: FR (occurrence: FR)
  Receive Date: 20110629
  Receipt Date: 20140527
  Transmission Date: 20141212
  Serious: Yes (Hospitalization)
  Sender: FDA-Public Use
  Company Number: PHHY2011FR53710

PATIENT
  Age: 74 Year
  Sex: Male

DRUGS (4)
  1. EXELON PATCH [Suspect]
     Indication: PARKINSON^S DISEASE
     Dosage: 4.6 MG/24HR
     Route: 062
     Dates: start: 201010, end: 20110419
  2. MODOPAR [Suspect]
     Indication: PARKINSON^S DISEASE
     Dosage: 125 MG, TID
     Route: 048
     Dates: start: 201005, end: 20111012
  3. SIFROL [Concomitant]
     Indication: PARKINSON^S DISEASE
     Dosage: UNK UKN, UNK
     Dates: start: 2008
  4. LOPERAMIDE [Concomitant]
     Dosage: UNK UKN, PRN

REACTIONS (3)
  - Colitis microscopic [Recovered/Resolved]
  - Diarrhoea [Recovered/Resolved]
  - Weight decreased [Recovered/Resolved]
